FAERS Safety Report 4761227-2 (Version None)
Quarter: 2005Q3

REPORT INFORMATION
  Report Type: 
  Country: None (occurrence: None)
  Receive Date: 20050902
  Receipt Date: 20050902
  Transmission Date: 20060218
  Serious: Yes (Other)
  Sender: FDA-Public Use
  Company Number: None

PATIENT
  Age: 42 Year
  Sex: Female
  Weight: 65 kg

DRUGS (1)
  1. TENORETIC 50 [Suspect]
     Indication: HYPERTENSION
     Dosage: 50/25 TABS 1 EVERY DAY
     Dates: start: 20000601, end: 20050307

REACTIONS (6)
  - CARDIAC MURMUR [None]
  - CARDIAC VALVE DISEASE [None]
  - CHEST PAIN [None]
  - DYSPNOEA [None]
  - FATIGUE [None]
  - PAIN IN EXTREMITY [None]
